FAERS Safety Report 7119879-8 (Version None)
Quarter: 2010Q4

REPORT INFORMATION
  Report Type: 
  Country: None (occurrence: None)
  Receive Date: 20101123
  Receipt Date: 20100925
  Transmission Date: 20110411
  Serious: No
  Sender: FDA-Public Use
  Company Number: US-BRISTOL-MYERS SQUIBB COMPANY-15300478

PATIENT
  Age: 6 Decade
  Sex: Female

DRUGS (1)
  1. ONGLYZA [Suspect]
     Dosage: DURATION: LESS THAN 30 DAYS

REACTIONS (1)
  - NAUSEA [None]
